FAERS Safety Report 8729701 (Version 2)
Quarter: 2012Q4

REPORT INFORMATION
  Report Type: 
  Country: US (occurrence: US)
  Receive Date: 20120817
  Receipt Date: 20120904
  Transmission Date: 20130627
  Serious: Yes (Other)
  Sender: FDA-Public Use
  Company Number: PHEH2012US015957

PATIENT
  Age: 48 None
  Sex: Female
  Weight: 75.28 kg

DRUGS (4)
  1. GILENYA [Suspect]
     Indication: RELAPSING-REMITTING MULTIPLE SCLEROSIS
     Dosage: 0.5 mg, QD
     Route: 048
     Dates: start: 20120417, end: 20120801
  2. PRISTIQ [Suspect]
     Indication: DEPRESSION
     Dosage: 50 mg, QD
     Route: 048
  3. LORTAB [Concomitant]
     Indication: PAIN
     Dosage: 7.5mg-500mg
     Route: 048
  4. ANTICHOLINERGICS [Concomitant]
     Dosage: UNK UKN, UNK

REACTIONS (6)
  - Macular fibrosis [Recovered/Resolved]
  - Visual impairment [Recovered/Resolved]
  - Vision blurred [Recovered/Resolved]
  - Retinal pigment epithelial tear [Unknown]
  - Retinal tear [Unknown]
  - Visual acuity tests abnormal [Unknown]
